FAERS Safety Report 8787144 (Version 3)
Quarter: 2013Q1

REPORT INFORMATION
  Report Type: Spontaneous
  Country: GB (occurrence: GB)
  Receive Date: 20120914
  Receipt Date: 20130104
  Transmission Date: 20140127
  Serious: Yes (Hospitalization)
  Sender: FDA-Public Use
  Company Number: GB-ELI_LILLY_AND_COMPANY-GB201209001599

PATIENT
  Age: 10 Year
  Sex: Female
  Weight: 21.9 kg

DRUGS (9)
  1. STRATTERA [Suspect]
     Indication: ATTENTION DEFICIT/HYPERACTIVITY DISORDER
     Dosage: 18 MG, QD
     Route: 048
     Dates: start: 201206
  2. STRATTERA [Suspect]
     Dosage: 25 MG, QD
     Route: 048
     Dates: start: 20120710
  3. STRATTERA [Suspect]
     Dosage: 40 MG, QD
     Route: 048
  4. STRATTERA [Suspect]
     Dosage: 60 MG, QD
     Route: 048
  5. MELATONIN [Concomitant]
     Dosage: 9 MG, EACH EVENING
  6. MELATONIN [Concomitant]
     Dosage: 6 MG, EACH EVENING
  7. RITALIN [Concomitant]
     Dosage: 20 MG, TID
  8. TRIMEPRAZINE [Concomitant]
     Dosage: 15 MG, EACH EVENING
  9. RISPERIDONE [Concomitant]

REACTIONS (5)
  - Staring [Recovered/Resolved]
  - Unresponsive to stimuli [Recovered/Resolved]
  - Tonic clonic movements [Recovered/Resolved]
  - Headache [Recovered/Resolved]
  - Drooling [Recovered/Resolved]
